FAERS Safety Report 23016871 (Version 6)
Quarter: 2023Q4

REPORT INFORMATION
  Report Type: Spontaneous
  Country: US (occurrence: US)
  Receive Date: 20231002
  Receipt Date: 20231215
  Transmission Date: 20240109
  Serious: No
  Sender: FDA-Public Use
  Company Number: US-AMGEN-USASP2023170844

PATIENT
  Age: 68 Year
  Sex: Female

DRUGS (1)
  1. PROLIA [Suspect]
     Active Substance: DENOSUMAB
     Indication: Osteoporosis
     Dosage: UNK, Q6MO
     Route: 065
     Dates: start: 202207

REACTIONS (18)
  - Confusional state [Not Recovered/Not Resolved]
  - Fracture [Not Recovered/Not Resolved]
  - Fluid retention [Not Recovered/Not Resolved]
  - Peripheral swelling [Not Recovered/Not Resolved]
  - Oropharyngeal pain [Not Recovered/Not Resolved]
  - Rhinorrhoea [Not Recovered/Not Resolved]
  - Dry skin [Not Recovered/Not Resolved]
  - Neck pain [Unknown]
  - Arthritis [Not Recovered/Not Resolved]
  - Cough [Not Recovered/Not Resolved]
  - Muscular weakness [Not Recovered/Not Resolved]
  - Back pain [Not Recovered/Not Resolved]
  - Nasopharyngitis [Unknown]
  - Myalgia [Not Recovered/Not Resolved]
  - Pruritus [Recovered/Resolved]
  - Musculoskeletal pain [Unknown]
  - Bone pain [Not Recovered/Not Resolved]
  - Pain in extremity [Unknown]

NARRATIVE: CASE EVENT DATE: 20230101
